FAERS Safety Report 16113316 (Version 2)
Quarter: 2022Q4

REPORT INFORMATION
  Report Type: Spontaneous
  Country: US (occurrence: US)
  Receive Date: 20190325
  Receipt Date: 20221214
  Transmission Date: 20230113
  Serious: No
  Sender: FDA-Public Use
  Company Number: US-PFIZER INC-2019123621

PATIENT
  Age: 82 Year
  Sex: Female
  Weight: 58.97 kg

DRUGS (1)
  1. DOFETILIDE [Suspect]
     Active Substance: DOFETILIDE
     Indication: Atrial fibrillation
     Dosage: 125 UG, 2X/DAY
     Route: 048
     Dates: start: 201811

REACTIONS (3)
  - Anxiety [Unknown]
  - Arthritis [Unknown]
  - Pain [Unknown]
